FAERS Safety Report 7639990-2 (Version None)
Quarter: 2011Q3

REPORT INFORMATION
  Report Type: 
  Country: None (occurrence: None)
  Receive Date: 20110727
  Receipt Date: 20110719
  Transmission Date: 20111222
  Serious: Yes (Other)
  Sender: FDA-Public Use
  Company Number: US-US-EMD SERONO, INC.-7065263

PATIENT
  Sex: Female
  Weight: 50 kg

DRUGS (3)
  1. REBIF [Suspect]
     Indication: MULTIPLE SCLEROSIS
     Dates: start: 20080101, end: 20110425
  2. OMEPRAZOLE [Concomitant]
  3. DILAUDID [Concomitant]
     Indication: HEADACHE

REACTIONS (5)
  - FALL [None]
  - MALAISE [None]
  - HYPERTENSION [None]
  - OEDEMA PERIPHERAL [None]
  - EXOSTOSIS [None]
